FAERS Safety Report 13419697 (Version 1)
Quarter: 2017Q2

REPORT INFORMATION
  Report Type: Report from Study
  Country: None (occurrence: BR)
  Receive Date: 20170407
  Receipt Date: 20170407
  Transmission Date: 20170830
  Serious: Yes (Hospitalization, Other)
  Sender: FDA-Public Use
  Company Number: BR-ABBVIE-17K-020-1928624-00

PATIENT

DRUGS (10)
  1. FLUCONAZOLE. [Suspect]
     Active Substance: FLUCONAZOLE
     Indication: FUNGAL TEST POSITIVE
     Route: 048
     Dates: start: 20170320
  2. ATACAND [Concomitant]
     Active Substance: CANDESARTAN CILEXETIL
     Indication: HYPERTENSION
     Route: 048
  3. LOSARTAN. [Concomitant]
     Active Substance: LOSARTAN
     Indication: HYPERTENSION
     Route: 048
     Dates: start: 201607
  4. HUMIRA [Suspect]
     Active Substance: ADALIMUMAB
     Indication: ANKYLOSING SPONDYLITIS
     Route: 058
     Dates: start: 201302
  5. HUMIRA [Suspect]
     Active Substance: ADALIMUMAB
     Route: 058
  6. METHOTREXATE. [Concomitant]
     Active Substance: METHOTREXATE
     Indication: SPONDYLITIS
     Route: 048
  7. LEXOTAN [Concomitant]
     Active Substance: BROMAZEPAM
     Indication: DEPRESSION
     Route: 048
     Dates: start: 201405
  8. METFORMIN [Concomitant]
     Active Substance: METFORMIN HYDROCHLORIDE
     Indication: DIABETES MELLITUS
     Route: 048
     Dates: start: 2016
  9. SERTRALINE [Concomitant]
     Active Substance: SERTRALINE HYDROCHLORIDE
     Indication: DEPRESSION
     Route: 048
     Dates: start: 201405
  10. DIAMICRON [Concomitant]
     Active Substance: GLICLAZIDE
     Indication: DIABETES MELLITUS
     Route: 048
     Dates: start: 2014

REACTIONS (16)
  - Haemorrhage [Unknown]
  - Fungal test positive [Recovered/Resolved]
  - Pruritus allergic [Recovered/Resolved]
  - Haematochezia [Unknown]
  - Iron deficiency anaemia [Unknown]
  - Mass [Recovered/Resolved]
  - Peripheral artery thrombosis [Recovering/Resolving]
  - Dermatitis contact [Recovered/Resolved]
  - Choking [Unknown]
  - Cough [Unknown]
  - Somnolence [Unknown]
  - Seminal vesiculitis [Unknown]
  - Pain [Recovering/Resolving]
  - Dermatitis allergic [Recovered/Resolved]
  - Peripheral artery occlusion [Recovered/Resolved]
  - Candida test positive [Unknown]

NARRATIVE: CASE EVENT DATE: 201605
